FAERS Safety Report 7286515-X (Version None)
Quarter: 2011Q1

REPORT INFORMATION
  Report Type: 
  Country: None (occurrence: None)
  Receive Date: 20110210
  Receipt Date: 20110204
  Transmission Date: 20110831
  Serious: Yes (Other)
  Sender: FDA-Public Use
  Company Number: DE-PFIZER INC-2011026065

PATIENT
  Sex: Female

DRUGS (1)
  1. LEVONORGESTREL + ETHINYL ESTRADIOL [Suspect]
     Indication: ORAL CONTRACEPTION
     Dosage: UNK
     Route: 048

REACTIONS (5)
  - POLYCYSTIC OVARIES [None]
  - METRORRHAGIA [None]
  - BLOOD LUTEINISING HORMONE DECREASED [None]
  - AMENORRHOEA [None]
  - BLOOD OESTROGEN DECREASED [None]
